FAERS Safety Report 15865078 (Version 1)
Quarter: 2019Q1

REPORT INFORMATION
  Report Type: Spontaneous
  Country: IT (occurrence: IT)
  Receive Date: 20190124
  Receipt Date: 20190124
  Transmission Date: 20190417
  Serious: Yes (Other)
  Sender: FDA-Public Use
  Company Number: IT-TEIKOKU PHARMA USA-TPU2019-00043

PATIENT
  Age: 50 Year
  Sex: Female

DRUGS (1)
  1. VERSATIS [Suspect]
     Active Substance: LIDOCAINE
     Indication: MUSCULOSKELETAL PAIN
     Route: 062
     Dates: start: 20181228, end: 20181229

REACTIONS (5)
  - Chest discomfort [Unknown]
  - Sense of oppression [Unknown]
  - Dyspnoea [Unknown]
  - Paralysis [Unknown]
  - Peripheral coldness [Unknown]

NARRATIVE: CASE EVENT DATE: 20181228
